FAERS Safety Report 6715806-3 (Version None)
Quarter: 2010Q2

REPORT INFORMATION
  Report Type: 
  Country: None (occurrence: None)
  Receive Date: 20100507
  Receipt Date: 20100426
  Transmission Date: 20101027
  Serious: Yes (Other)
  Sender: FDA-Public Use
  Company Number: JP-JNJFOC-20100407716

PATIENT
  Sex: Male

DRUGS (6)
  1. PREZISTA [Suspect]
     Indication: HIV INFECTION
     Route: 048
     Dates: start: 20090511
  2. CRAVIT [Concomitant]
     Route: 048
     Dates: start: 20090218
  3. ESANBUTOL [Concomitant]
     Route: 048
     Dates: start: 20090218
  4. MYCOBUTIN [Concomitant]
     Route: 048
     Dates: start: 20090304
  5. TRUVADA [Concomitant]
     Indication: HIV INFECTION
     Route: 048
     Dates: start: 20090511, end: 20090518
  6. NORVIR [Concomitant]
     Indication: HIV INFECTION
     Route: 048
     Dates: start: 20090511, end: 20090518

REACTIONS (3)
  - IMMUNE RECONSTITUTION SYNDROME [None]
  - OVERDOSE [None]
  - PNEUMOCYSTIS JIROVECI PNEUMONIA [None]
